FAERS Safety Report 10233614 (Version 1)
Quarter: 2014Q2

REPORT INFORMATION
  Report Type: Spontaneous
  Country: NL (occurrence: None)
  Receive Date: 20140610
  Receipt Date: 20140610
  Transmission Date: 20141212
  Serious: Yes (Death, Hospitalization)
  Sender: FDA-Public Use
  Company Number: FK201402207

PATIENT
  Age: 70 Year
  Sex: Female

DRUGS (2)
  1. OXALIPLATIN [Suspect]
     Indication: RECTAL CANCER
  2. CAPECITABINE [Suspect]
     Indication: RECTAL CANCER

REACTIONS (14)
  - Multi-organ failure [None]
  - Mucosal inflammation [None]
  - Sepsis [None]
  - Thrombocytopenia [None]
  - Intestinal haemorrhage [None]
  - Acute myocardial infarction [None]
  - Hypokalaemia [None]
  - Pulseless electrical activity [None]
  - Renal failure [None]
  - Respiratory failure [None]
  - Ascites [None]
  - Hepatic failure [None]
  - Diarrhoea [None]
  - Toxicity to various agents [None]
